FAERS Safety Report 4617721-8 (Version None)
Quarter: 2005Q1

REPORT INFORMATION
  Report Type: 
  Country: None (occurrence: None)
  Receive Date: 20050324
  Receipt Date: 20050315
  Transmission Date: 20050727
  Serious: Yes (Other)
  Sender: FDA-Public Use
  Company Number: CA-ROCHE-398664

PATIENT
  Age: 57 Year
  Sex: Male

DRUGS (1)
  1. LARIAM [Suspect]
     Indication: MALARIA PROPHYLAXIS
     Dosage: 3 DOSES TAKEN
     Route: 048
     Dates: start: 20050215

REACTIONS (1)
  - PANCREATITIS [None]
